FAERS Safety Report 23226696 (Version 1)
Quarter: 2023Q4

REPORT INFORMATION
  Report Type: Spontaneous
  Country: DE (occurrence: DE)
  Receive Date: 20231124
  Receipt Date: 20231124
  Transmission Date: 20240110
  Serious: Yes (Other)
  Sender: FDA-Public Use
  Company Number: DE-SANDOZ-SDZ2023DE011049

PATIENT
  Sex: Male

DRUGS (1)
  1. SERTRALINE [Suspect]
     Active Substance: SERTRALINE HYDROCHLORIDE
     Indication: Product used for unknown indication
     Dosage: 20 GTT DROPS, DAILY, (APPROX. 36 MG)
     Route: 065

REACTIONS (3)
  - Leukoplakia oral [Unknown]
  - Tongue disorder [Unknown]
  - Ageusia [Unknown]
